FAERS Safety Report 9053228 (Version 2)
Quarter: 2013Q1

REPORT INFORMATION
  Report Type: Spontaneous
  Country: PL (occurrence: PL)
  Receive Date: 20130208
  Receipt Date: 20130306
  Transmission Date: 20140127
  Serious: Yes (Life-Threatening, Hospitalization, Other)
  Sender: FDA-Public Use
  Company Number: PHHY2013PL009285

PATIENT
  Age: 35 Year
  Sex: Female

DRUGS (3)
  1. TORECAN [Suspect]
     Dosage: UNK (SEVERAL TABLETS)
  2. KETONAL [Suspect]
     Dosage: 15 DF, UNK
  3. KLOZAPOL [Suspect]
     Dosage: 30 DF, UNK

REACTIONS (12)
  - Toxicity to various agents [Recovering/Resolving]
  - Pulmonary oedema [Recovered/Resolved]
  - Tachypnoea [Recovering/Resolving]
  - Tachycardia [Recovering/Resolving]
  - Suicide attempt [Unknown]
  - Increased bronchial secretion [Recovering/Resolving]
  - Overdose [Recovering/Resolving]
  - Loss of consciousness [Recovering/Resolving]
  - Unresponsive to stimuli [Recovering/Resolving]
  - Psychomotor hyperactivity [Recovering/Resolving]
  - Electrocardiogram QT prolonged [Recovered/Resolved]
  - Personality disorder [Unknown]
